FAERS Safety Report 16011944 (Version 1)
Quarter: 2019Q1

REPORT INFORMATION
  Report Type: Spontaneous
  Country: US (occurrence: US)
  Receive Date: 20190226
  Receipt Date: 20190226
  Transmission Date: 20190418
  Serious: No
  Sender: FDA-Public Use
  Company Number: None

PATIENT
  Age: 55 Year
  Sex: Male
  Weight: 83.25 kg

DRUGS (1)
  1. ISOVUE [Suspect]
     Active Substance: IOPAMIDOL
     Indication: NECK PAIN
     Route: 042

REACTIONS (4)
  - Hypoglycaemia [None]
  - Erythema [None]
  - Pruritus [None]
  - Dizziness [None]

NARRATIVE: CASE EVENT DATE: 20190219
